FAERS Safety Report 12970378 (Version 1)
Quarter: 2016Q4

REPORT INFORMATION
  Report Type: Spontaneous
  Country: US (occurrence: US)
  Receive Date: 20161123
  Receipt Date: 20161123
  Transmission Date: 20170207
  Serious: No
  Sender: FDA-Public Use
  Company Number: US-ASTRAZENECA-2016SF21473

PATIENT
  Sex: Female

DRUGS (2)
  1. FULVESTRANT [Suspect]
     Active Substance: FULVESTRANT
     Route: 030
  2. AROMASIN [Suspect]
     Active Substance: EXEMESTANE
     Route: 065

REACTIONS (5)
  - Dyspnoea [Unknown]
  - Skin discolouration [Unknown]
  - Drug intolerance [Unknown]
  - Peripheral swelling [Unknown]
  - Muscular weakness [Unknown]
